FAERS Safety Report 15621986 (Version 1)
Quarter: 2018Q4

REPORT INFORMATION
  Report Type: Spontaneous
  Country: BR (occurrence: BR)
  Receive Date: 20181115
  Receipt Date: 20181115
  Transmission Date: 20190205
  Serious: Yes (Other)
  Sender: FDA-Public Use
  Company Number: PHHY2018BR151759

PATIENT
  Sex: Male

DRUGS (4)
  1. CARBOPLATIN. [Suspect]
     Active Substance: CARBOPLATIN
     Indication: FOETAL EXPOSURE DURING PREGNANCY
     Dosage: UNK
     Route: 064
  2. PACLITAXEL. [Suspect]
     Active Substance: PACLITAXEL
     Indication: FOETAL EXPOSURE DURING PREGNANCY
     Dosage: UNK
     Route: 064
  3. PACLITAXEL. [Suspect]
     Active Substance: PACLITAXEL
     Indication: EXPOSURE VIA BREAST MILK
  4. CARBOPLATIN. [Suspect]
     Active Substance: CARBOPLATIN
     Indication: EXPOSURE VIA BREAST MILK

REACTIONS (3)
  - Foetal exposure during pregnancy [Unknown]
  - Retinoblastoma [Unknown]
  - Low birth weight baby [Unknown]
